FAERS Safety Report 5242150-6 (Version None)
Quarter: 2007Q1

REPORT INFORMATION
  Report Type: 
  Country: None (occurrence: None)
  Receive Date: 20070213
  Receipt Date: 20070124
  Transmission Date: 20070707
  Serious: No
  Sender: FDA-Public Use
  Company Number: TPA2007A00232

PATIENT
  Age: 37 Year
  Sex: Female
  Weight: 60.782 kg

DRUGS (4)
  1. ROZEREM [Suspect]
     Indication: INSOMNIA
     Dosage: 8 MG HS PER ORAL ; 8 MG 2 TABS HS PER ORAL
     Route: 048
     Dates: start: 20070119
  2. ROZEREM [Suspect]
     Indication: INSOMNIA
     Dosage: 8 MG HS PER ORAL ; 8 MG 2 TABS HS PER ORAL
     Route: 048
     Dates: start: 20070122
  3. AMBIEN [Suspect]
     Indication: INSOMNIA
  4. NAPROSYN [Concomitant]

REACTIONS (1)
  - DRUG INEFFECTIVE [None]
